FAERS Safety Report 13447173 (Version 1)
Quarter: 2017Q2

REPORT INFORMATION
  Report Type: Spontaneous
  Country: US (occurrence: US)
  Receive Date: 20170415
  Receipt Date: 20170415
  Transmission Date: 20170830
  Serious: Yes (Disabling)
  Sender: FDA-Public Use
  Company Number: None

PATIENT
  Age: 47 Year
  Sex: Female
  Weight: 63 kg

DRUGS (13)
  1. CHLORELLA VULGARIS [Concomitant]
     Active Substance: CHLORELLA VULGARIS
  2. APPLECIDER VINEGAR [Concomitant]
  3. VITAMIN E [Concomitant]
     Active Substance: .ALPHA.-TOCOPHEROL
  4. MARJORJAM OIL [Concomitant]
  5. LEVAQUIN [Suspect]
     Active Substance: LEVOFLOXACIN
     Indication: BRONCHITIS
     Dosage: ?          QUANTITY:3 TABLET(S);?
     Route: 048
     Dates: start: 20170123, end: 20170125
  6. FLOVENT [Concomitant]
     Active Substance: FLUTICASONE PROPIONATE
  7. AMATRIPOLYNE [Concomitant]
  8. MAGNESIUM SUPPLEMENTAL DRINK [Concomitant]
  9. SPIRULINA [Concomitant]
     Active Substance: SPIRULINA
  10. FISH OIL [Concomitant]
     Active Substance: FISH OIL
  11. VITAMIN B12 [Concomitant]
     Active Substance: CYANOCOBALAMIN
  12. TUMERIC INFLAMIN [Concomitant]
  13. VITAMIN C [Concomitant]
     Active Substance: ASCORBIC ACID

REACTIONS (2)
  - Tendon pain [None]
  - Cough [None]

NARRATIVE: CASE EVENT DATE: 20170124
